FAERS Safety Report 23660719 (Version 2)
Quarter: 2024Q2

REPORT INFORMATION
  Report Type: Spontaneous
  Country: US (occurrence: US)
  Receive Date: 20240322
  Receipt Date: 20240506
  Transmission Date: 20240716
  Serious: Yes (Other)
  Sender: FDA-Public Use
  Company Number: US-BRISTOL-MYERS SQUIBB COMPANY-2024-044394

PATIENT
  Age: 63 Year
  Sex: Male
  Weight: 73.94 kg

DRUGS (9)
  1. LENALIDOMIDE [Suspect]
     Active Substance: LENALIDOMIDE
     Indication: Plasma cell myeloma
     Route: 048
     Dates: start: 20240206
  2. DEXAMETHASONE [Concomitant]
     Active Substance: DEXAMETHASONE
  3. FAMOTIDINE [Concomitant]
     Active Substance: FAMOTIDINE
  4. ESOMEPRAZOLE [Concomitant]
     Active Substance: ESOMEPRAZOLE
  5. ONDANSETRON [Concomitant]
     Active Substance: ONDANSETRON
     Dosage: DISINTEGRATING TABLET
     Route: 048
  6. PROCHLORPERAZINE [Concomitant]
     Active Substance: PROCHLORPERAZINE
  7. ACYCLOVIR [Concomitant]
     Active Substance: ACYCLOVIR
  8. ALBUTEROL SULFATE [Concomitant]
     Active Substance: ALBUTEROL SULFATE
     Dosage: INHALER
  9. PREDNISONE [Concomitant]
     Active Substance: PREDNISONE

REACTIONS (2)
  - Pulmonary embolism [Recovering/Resolving]
  - Emphysema [Unknown]

NARRATIVE: CASE EVENT DATE: 20240314
